FAERS Safety Report 8885872 (Version 1)
Quarter: 2012Q4

REPORT INFORMATION
  Report Type: 
  Country: DE (occurrence: DE)
  Receive Date: 20121102
  Receipt Date: 20121102
  Transmission Date: 20130627
  Serious: Yes (Other)
  Sender: FDA-Public Use
  Company Number: DE-JNJFOC-20121012811

PATIENT
  Age: 31 Year
  Sex: Female

DRUGS (6)
  1. RISPERIDONE [Suspect]
     Indication: SUICIDAL IDEATION
     Route: 048
  2. RISPERIDONE [Suspect]
     Indication: PARANOIA
     Route: 048
  3. RISPERIDONE [Suspect]
     Indication: PARANOIA
     Dosage: dose increased
     Route: 030
  4. RISPERIDONE [Suspect]
     Indication: PARANOIA
     Route: 030
  5. RISPERIDONE [Suspect]
     Indication: SUICIDAL IDEATION
     Route: 030
  6. RISPERIDONE [Suspect]
     Indication: SUICIDAL IDEATION
     Dosage: dose increased
     Route: 030

REACTIONS (5)
  - Hallucination, auditory [Recovering/Resolving]
  - Psychotic disorder [Recovering/Resolving]
  - Paranoia [Recovering/Resolving]
  - Restlessness [Recovered/Resolved]
  - Sleep disorder [Recovering/Resolving]
